FAERS Safety Report 4332531-7 (Version None)
Quarter: 2004Q2

REPORT INFORMATION
  Report Type: 
  Country: None (occurrence: None)
  Receive Date: 20040401
  Receipt Date: 20040317
  Transmission Date: 20050107
  Serious: Yes (Hospitalization)
  Sender: FDA-Public Use
  Company Number: 2004-06812

PATIENT
  Age: 47 Year
  Sex: Male
  Weight: 77.5 kg

DRUGS (4)
  1. TENOFOVIR DF [Suspect]
     Indication: HIV INFECTION
     Dosage: 300 MG QD PO
     Route: 048
     Dates: start: 20030927
  2. LAMIVUDINE [Concomitant]
  3. NEVIRAPINE [Concomitant]
  4. PANTOLOC ^BYK GULDEN^ [Concomitant]

REACTIONS (2)
  - ABDOMINAL PAIN [None]
  - BACK PAIN [None]
